FAERS Safety Report 10467674 (Version 6)
Quarter: 2015Q3

REPORT INFORMATION
  Report Type: Spontaneous
  Country: JP (occurrence: JP)
  Receive Date: 20140922
  Receipt Date: 20150730
  Transmission Date: 20151125
  Serious: Yes (Other)
  Sender: FDA-Public Use
  Company Number: JP-GLAXOSMITHKLINE-B1017422A

PATIENT
  Age: 43 Year
  Sex: Male

DRUGS (3)
  1. LOPEMIN [Concomitant]
     Active Substance: LOPERAMIDE HYDROCHLORIDE
     Indication: DIARRHOEA
     Dosage: 2 MG, QD
     Dates: start: 20140618
  2. PAZOPANIB [Suspect]
     Active Substance: PAZOPANIB
     Dosage: 400 MG, 1D
     Route: 048
     Dates: start: 201412
  3. PAZOPANIB [Suspect]
     Active Substance: PAZOPANIB
     Indication: SOFT TISSUE SARCOMA
     Dosage: 800 MG, QD
     Route: 048
     Dates: start: 20140618, end: 201412

REACTIONS (14)
  - Anal ulcer [Recovered/Resolved]
  - Vitamin B12 decreased [Recovered/Resolved]
  - Blood folate decreased [Recovering/Resolving]
  - Blood cholesterol abnormal [Recovered/Resolved]
  - Diarrhoea [Unknown]
  - Thyroxine free abnormal [Recovered/Resolved]
  - Urine output increased [Recovering/Resolving]
  - Blood creatine phosphokinase abnormal [Recovered/Resolved]
  - Diarrhoea [Recovering/Resolving]
  - Alopecia [Recovering/Resolving]
  - Blood thyroid stimulating hormone increased [Recovered/Resolved]
  - Hair colour changes [Recovering/Resolving]
  - Electrocardiogram abnormal [Unknown]
  - Skin depigmentation [Unknown]

NARRATIVE: CASE EVENT DATE: 20140718
